FAERS Safety Report 25183717 (Version 1)
Quarter: 2025Q2

REPORT INFORMATION
  Report Type: Spontaneous
  Country: US (occurrence: None)
  Receive Date: 20250409
  Receipt Date: 20250409
  Transmission Date: 20250717
  Serious: Yes (Congenital Anomaly)
  Sender: FDA-CTU
  Company Number: None

PATIENT
  Age: 67 Year
  Sex: Female

DRUGS (2)
  1. JAKAFI [Suspect]
     Active Substance: RUXOLITINIB
     Indication: Drug therapy
     Dosage: 5 MG TWICE A DAY ORAL
     Route: 048
     Dates: start: 20240729
  2. JAKAFI [Concomitant]
     Active Substance: RUXOLITINIB
     Dates: start: 20240729

REACTIONS (3)
  - Acne [None]
  - Secretion discharge [None]
  - Burning sensation [None]

NARRATIVE: CASE EVENT DATE: 20250407
